FAERS Safety Report 8046160-5 (Version None)
Quarter: 2012Q1

REPORT INFORMATION
  Report Type: 
  Country: None (occurrence: None)
  Receive Date: 20120113
  Receipt Date: 20120111
  Transmission Date: 20120608
  Serious: Yes (Death)
  Sender: FDA-Public Use
  Company Number: US-CELGENEUS-163-21880-11122587

PATIENT
  Sex: Female

DRUGS (1)
  1. REVLIMID [Suspect]
     Indication: MULTIPLE MYELOMA
     Dosage: 25 MILLIGRAM
     Route: 048
     Dates: start: 20111101

REACTIONS (5)
  - CACHEXIA [None]
  - CARDIAC DISORDER [None]
  - URINARY TRACT INFECTION [None]
  - MULTIPLE MYELOMA [None]
  - HYPOTENSION [None]
